FAERS Safety Report 17705521 (Version 1)
Quarter: 2020Q2

REPORT INFORMATION
  Report Type: Spontaneous
  Country: SE (occurrence: SE)
  Receive Date: 20200424
  Receipt Date: 20200424
  Transmission Date: 20200714
  Serious: Yes (Other)
  Sender: FDA-Public Use
  Company Number: SE-ASTRAZENECA-2020SE54161

PATIENT
  Sex: Female

DRUGS (5)
  1. OESTRING [Concomitant]
     Active Substance: ESTRADIOL
  2. OMEPRAZOLE. [Suspect]
     Active Substance: OMEPRAZOLE
     Indication: HIATUS HERNIA
     Route: 048
     Dates: start: 20170929, end: 20200310
  3. LOSARTAN. [Concomitant]
     Active Substance: LOSARTAN
  4. BISOPROLOL [Concomitant]
     Active Substance: BISOPROLOL
  5. BEHEPAN [Concomitant]

REACTIONS (2)
  - Malaise [Recovered/Resolved]
  - Dyspnoea [Recovered/Resolved]
